FAERS Safety Report 7113764-3 (Version None)
Quarter: 2010Q4

REPORT INFORMATION
  Report Type: 
  Country: None (occurrence: None)
  Receive Date: 20101119
  Receipt Date: 20101108
  Transmission Date: 20110411
  Serious: Yes (Other)
  Sender: FDA-Public Use
  Company Number: FR-PFIZER INC-2010142113

PATIENT
  Age: 66 Year
  Sex: Female

DRUGS (5)
  1. XANAX [Suspect]
     Route: 048
  2. ATARAX [Suspect]
     Dosage: UNK
     Route: 048
  3. NISISCO [Suspect]
     Dosage: UNK
     Route: 048
     Dates: end: 20100324
  4. PROZAC [Suspect]
     Dosage: UNK
     Route: 048
     Dates: end: 20090101
  5. AMLODIPINE [Concomitant]
     Dosage: UNK
     Dates: start: 20100324

REACTIONS (2)
  - MYCOSIS FUNGOIDES [None]
  - PSEUDOLYMPHOMA [None]
